FAERS Safety Report 7033489-2 (Version None)
Quarter: 2010Q4

REPORT INFORMATION
  Report Type: 
  Country: None (occurrence: None)
  Receive Date: 20101007
  Receipt Date: 20100930
  Transmission Date: 20110411
  Serious: Yes (Hospitalization)
  Sender: FDA-Public Use
  Company Number: JP-SANOFI-AVENTIS-2010SA045076

PATIENT
  Age: 80 Year
  Sex: Female
  Weight: 60 kg

DRUGS (12)
  1. PLAVIX [Suspect]
     Indication: ANGINA UNSTABLE
     Route: 048
     Dates: start: 20100413, end: 20100413
  2. PLAVIX [Suspect]
     Route: 048
     Dates: start: 20100414
  3. ASPIRIN [Suspect]
     Indication: ANGINA UNSTABLE
     Route: 048
     Dates: start: 20100413
  4. HEPARIN SODIUM [Suspect]
     Indication: ANGINA UNSTABLE
     Dosage: DOSE:7000 UNIT(S)
     Route: 042
     Dates: start: 20100413, end: 20100413
  5. HEPARIN SODIUM [Suspect]
     Dosage: DOSE:7000 UNIT(S)
     Route: 042
     Dates: start: 20100526, end: 20100526
  6. TAKEPRON [Concomitant]
     Indication: PROPHYLAXIS
     Route: 048
     Dates: start: 20100414
  7. SIGMART [Concomitant]
     Indication: ANGINA UNSTABLE
     Route: 048
     Dates: start: 20100414
  8. BLOPRESS [Concomitant]
     Indication: HYPERTENSION
     Route: 048
     Dates: start: 20100414
  9. MAGNESIUM OXIDE [Concomitant]
     Indication: CONSTIPATION
     Route: 048
     Dates: start: 20100414
  10. FOIPAN [Concomitant]
     Indication: PANCREATITIS CHRONIC
     Route: 048
  11. PURSENNID /SCH/ [Concomitant]
     Indication: CONSTIPATION
     Route: 048
     Dates: start: 20100414
  12. CRESTOR [Concomitant]
     Route: 048
     Dates: start: 20100414

REACTIONS (1)
  - VASCULAR PSEUDOANEURYSM [None]
